FAERS Safety Report 8424603-2 (Version None)
Quarter: 2012Q2

REPORT INFORMATION
  Report Type: 
  Country: None (occurrence: None)
  Receive Date: 20120611
  Receipt Date: 20120606
  Transmission Date: 20120825
  Serious: Yes (Other)
  Sender: FDA-Public Use
  Company Number: US-AMGEN-USASP2012035564

PATIENT
  Age: 38 Year
  Sex: Male

DRUGS (1)
  1. ENBREL [Suspect]
     Indication: ANKYLOSING SPONDYLITIS
     Dosage: 50 MG, QWK
     Dates: start: 20100728

REACTIONS (5)
  - IRITIS [None]
  - INJECTION SITE INFLAMMATION [None]
  - ANKYLOSING SPONDYLITIS [None]
  - INJECTION SITE MASS [None]
  - INJECTION SITE PAIN [None]
